FAERS Safety Report 5326639-7 (Version None)
Quarter: 2007Q2

REPORT INFORMATION
  Report Type: 
  Country: None (occurrence: None)
  Receive Date: 20070516
  Receipt Date: 20070504
  Transmission Date: 20071010
  Serious: Yes (Hospitalization, Other)
  Sender: FDA-Public Use
  Company Number: US-PFIZER INC-2002067251

PATIENT
  Age: 75 Year
  Sex: Female
  Weight: 59.9 kg

DRUGS (5)
  1. TIKOSYN [Suspect]
     Indication: ATRIAL FIBRILLATION
     Route: 048
  2. DILTIAZEM HCL [Suspect]
     Route: 048
  3. SINGULAIR [Concomitant]
     Dosage: DAILY DOSE:10MG
  4. LOVENOX [Concomitant]
  5. ASPIRIN [Concomitant]

REACTIONS (4)
  - ANGINA UNSTABLE [None]
  - ATRIAL FIBRILLATION [None]
  - BLOOD POTASSIUM DECREASED [None]
  - ELECTROCARDIOGRAM QT CORRECTED INTERVAL PROLONGED [None]
